FAERS Safety Report 8273596-X (Version None)
Quarter: 2012Q2

REPORT INFORMATION
  Report Type: 
  Country: None (occurrence: None)
  Receive Date: 20120411
  Receipt Date: 20120126
  Transmission Date: 20120825
  Serious: No
  Sender: FDA-Public Use
  Company Number: US-TEVA-319593USA

PATIENT
  Sex: Male
  Weight: 88.53 kg

DRUGS (6)
  1. NUVIGIL [Suspect]
     Indication: SLEEP APNOEA SYNDROME
     Dosage: QAM
     Dates: start: 20120124
  2. LISINOPRIL [Concomitant]
     Indication: HYPERTENSION
     Dosage: QD
     Route: 048
     Dates: start: 20080101
  3. VENLAFAXINE HYDROCHLORIDE [Concomitant]
     Indication: HYPERTENSION
     Dosage: QD
     Route: 048
     Dates: start: 20070101
  4. DYAZIDE [Concomitant]
     Indication: HYPERTENSION
     Dosage: 37.5MG/25MG QD
     Route: 048
  5. VICODIN [Concomitant]
     Indication: BACK PAIN
     Dosage: 7.5MG/750MG
     Route: 048
     Dates: start: 20100101
  6. ATENOLOL [Concomitant]
     Indication: HYPERTENSION
     Dosage: 50 MILLIGRAM;
     Route: 048
     Dates: start: 20070101

REACTIONS (4)
  - DRUG INTERACTION [None]
  - MIDDLE INSOMNIA [None]
  - BURNING SENSATION [None]
  - DIZZINESS [None]
